FAERS Safety Report 5241864-1 (Version None)
Quarter: 2007Q1

REPORT INFORMATION
  Report Type: 
  Country: None (occurrence: None)
  Receive Date: 20070220
  Receipt Date: 20070212
  Transmission Date: 20070707
  Serious: Yes (Other)
  Sender: FDA-Public Use
  Company Number: GB-PFIZER INC-2007011903

PATIENT
  Age: 64 Year
  Sex: Male
  Weight: 120 kg

DRUGS (10)
  1. EPLERENONE [Suspect]
     Indication: VENTRICULAR DYSFUNCTION
     Route: 048
     Dates: start: 20060814, end: 20061215
  2. ASPIRIN [Concomitant]
     Indication: VENTRICULAR FIBRILLATION
     Dosage: DAILY DOSE:75MG
     Route: 048
  3. ATORVASTATIN [Concomitant]
     Indication: HYPERCHOLESTEROLAEMIA
     Dosage: DAILY DOSE:10MG
     Route: 048
  4. BISOPROLOL FUMARATE [Concomitant]
     Indication: VENTRICULAR FIBRILLATION
     Dosage: DAILY DOSE:10MG
     Route: 048
  5. BOLDO [Concomitant]
     Route: 048
  6. DICLOFENAC SODIUM [Concomitant]
     Indication: PAIN
     Route: 048
  7. FUROSEMIDE [Concomitant]
     Indication: VENTRICULAR FIBRILLATION
     Dosage: DAILY DOSE:40MG
     Route: 048
  8. PERINDOPRIL ERBUMINE [Concomitant]
     Indication: VENTRICULAR FIBRILLATION
     Dosage: DAILY DOSE:4MG
     Route: 048
  9. SOLPADOL [Concomitant]
     Indication: PAIN
     Dosage: TEXT:2 DF
     Route: 048
  10. ZYDOL - SLOW RELEASE [Concomitant]
     Indication: PAIN
     Route: 048

REACTIONS (4)
  - AMNESIA [None]
  - APHASIA [None]
  - HYPERHIDROSIS [None]
  - PRURITUS [None]
